FAERS Safety Report 9526651 (Version 7)
Quarter: 2017Q4

REPORT INFORMATION
  Report Type: Spontaneous
  Country: US (occurrence: US)
  Receive Date: 20130916
  Receipt Date: 20171205
  Transmission Date: 20180321
  Serious: Yes (Hospitalization, Disabling, Other)
  Sender: FDA-Public Use
  Company Number: US-009507513-1103USA00958

PATIENT
  Sex: Female
  Weight: 74.83 kg

DRUGS (3)
  1. BONIVA [Concomitant]
     Active Substance: IBANDRONATE SODIUM
     Indication: OSTEOPOROSIS
     Dosage: 150 MG, UNKNOWN
     Route: 065
     Dates: start: 200707, end: 200804
  2. FOSAMAX [Suspect]
     Active Substance: ALENDRONATE SODIUM
     Indication: OSTEOPOROSIS
  3. FOSAMAX [Suspect]
     Active Substance: ALENDRONATE SODIUM
     Indication: OSTEOPOROSIS PROPHYLAXIS
     Dosage: 70 MG, UNKNOWN
     Route: 048
     Dates: start: 200206, end: 200706

REACTIONS (39)
  - Femur fracture [Not Recovered/Not Resolved]
  - Patella fracture [Unknown]
  - Pain in extremity [Not Recovered/Not Resolved]
  - Implant site pain [Unknown]
  - Presyncope [Unknown]
  - Peripheral vascular disorder [Unknown]
  - Peripheral swelling [Not Recovered/Not Resolved]
  - Balance disorder [Not Recovered/Not Resolved]
  - Carotid artery disease [Unknown]
  - Diabetes mellitus [Unknown]
  - Hyperlipidaemia [Unknown]
  - Low turnover osteopathy [Not Recovered/Not Resolved]
  - Gait disturbance [Not Recovered/Not Resolved]
  - Tendonitis [Recovering/Resolving]
  - Carotid artery stenosis [Unknown]
  - Spinal osteoarthritis [Unknown]
  - Anaemia [Unknown]
  - Pain [Unknown]
  - Gastrooesophageal reflux disease [Unknown]
  - Spinal osteoarthritis [Unknown]
  - Sciatica [Unknown]
  - Tendonitis [Unknown]
  - Ankle fracture [Unknown]
  - Back pain [Unknown]
  - Hypertension [Unknown]
  - Presyncope [Recovered/Resolved]
  - Dizziness [Unknown]
  - Groin pain [Not Recovered/Not Resolved]
  - Bursitis [Unknown]
  - Periorbital haemorrhage [Recovered/Resolved]
  - Fracture delayed union [Recovered/Resolved]
  - Carotid endarterectomy [Unknown]
  - Fracture [Unknown]
  - Femur fracture [Not Recovered/Not Resolved]
  - Arthralgia [Unknown]
  - Joint swelling [Not Recovered/Not Resolved]
  - Osteopenia [Unknown]
  - Hypotension [Recovered/Resolved]
  - Ecchymosis [Recovered/Resolved]

NARRATIVE: CASE EVENT DATE: 200806
